FAERS Safety Report 5669919-8 (Version None)
Quarter: 2008Q1

REPORT INFORMATION
  Report Type: 
  Country: None (occurrence: None)
  Receive Date: 20080317
  Receipt Date: 20080305
  Transmission Date: 20080703
  Serious: Yes (Other)
  Sender: FDA-Public Use
  Company Number: JP-PFIZER INC-2008021439

PATIENT
  Sex: Female

DRUGS (1)
  1. ZITHROMAX [Suspect]
     Indication: PERIODONTAL DISEASE
     Route: 048

REACTIONS (6)
  - ABNORMAL FAECES [None]
  - DIARRHOEA [None]
  - HAEMATURIA [None]
  - HEPATIC FUNCTION ABNORMAL [None]
  - RETINAL HAEMORRHAGE [None]
  - URINARY RETENTION [None]
